FAERS Safety Report 7316204-4 (Version None)
Quarter: 2011Q1

REPORT INFORMATION
  Report Type: 
  Country: None (occurrence: None)
  Receive Date: 20110225
  Receipt Date: 20110214
  Transmission Date: 20110831
  Serious: Yes (Other)
  Sender: FDA-Public Use
  Company Number: DE-B.I. PHARMACEUTICALS,INC./RIDGEFIELD-2011-DE-01104DE

PATIENT
  Age: 67 Year
  Sex: Male
  Weight: 80 kg

DRUGS (3)
  1. CHOLESTEROL LOWERING [Concomitant]
  2. SIFROL [Suspect]
  3. ASPIRIN [Suspect]

REACTIONS (1)
  - RENAL DISORDER [None]
